FAERS Safety Report 7357889-6 (Version None)
Quarter: 2011Q1

REPORT INFORMATION
  Report Type: 
  Country: None (occurrence: None)
  Receive Date: 20110225
  Receipt Date: 20101102
  Transmission Date: 20110831
  Serious: No
  Sender: FDA-Public Use
  Company Number: 318201

PATIENT
  Sex: Male

DRUGS (9)
  1. AZION (AZATHIOPRINE) [Concomitant]
  2. LOBAZAM (CLOBAZAM) [Concomitant]
  3. VICTOZA [Suspect]
     Indication: TYPE 2 DIABETES MELLITUS
     Dosage: 0.6 MG, QD, SUBCUTANEOUS, 1.2 MG, QD, SUBCUTANEOUS
     Route: 058
     Dates: start: 20101021
  4. FISH OIL (FISH OIL) [Concomitant]
  5. ERGOCALCIFEROL [Concomitant]
  6. METFORMIN (METFORMIN) [Concomitant]
  7. ZOLPIDEM [Concomitant]
  8. KLOR-CON [Concomitant]
  9. FUROSEMIDE [Concomitant]

REACTIONS (2)
  - WEIGHT DECREASED [None]
  - MUSCLE SPASMS [None]
